FAERS Safety Report 8841971 (Version 1)
Quarter: 2012Q4

REPORT INFORMATION
  Report Type: Spontaneous
  Country: US (occurrence: None)
  Receive Date: 20121015
  Receipt Date: 20121015
  Transmission Date: 20130627
  Serious: No
  Sender: FDA-Public Use
  Company Number: None

PATIENT
  Age: 84 Year
  Sex: Male
  Weight: 80.74 kg

DRUGS (1)
  1. VESICARE [Suspect]
     Indication: URINARY FREQUENCY
     Dosage: 5MG 1 DAY BEDTIME
     Dates: start: 20120710, end: 20120901

REACTIONS (3)
  - Pain in extremity [None]
  - Back pain [None]
  - Activities of daily living impaired [None]
